FAERS Safety Report 23578495 (Version 2)
Quarter: 2024Q1

REPORT INFORMATION
  Report Type: Spontaneous
  Country: US (occurrence: US)
  Receive Date: 20240229
  Receipt Date: 20240305
  Transmission Date: 20240410
  Serious: Yes (Other)
  Sender: FDA-Public Use
  Company Number: US-SUN PHARMACEUTICAL INDUSTRIES LTD-2024R1-433299

PATIENT
  Age: 58 Year
  Sex: Male

DRUGS (3)
  1. CLOZAPINE [Suspect]
     Active Substance: CLOZAPINE
     Indication: Disorganised speech
     Dosage: UNK
     Route: 065
  2. CLOZAPINE [Suspect]
     Active Substance: CLOZAPINE
     Indication: Abnormal behaviour
  3. CLOZAPINE [Suspect]
     Active Substance: CLOZAPINE
     Indication: Delusion

REACTIONS (3)
  - Pericardial effusion [Recovered/Resolved]
  - Acute myocardial infarction [Recovered/Resolved]
  - Toxicity to various agents [Recovered/Resolved]
